FAERS Safety Report 9380921 (Version 1)
Quarter: 2013Q3

REPORT INFORMATION
  Report Type: Spontaneous
  Country: US (occurrence: US)
  Receive Date: 20130703
  Receipt Date: 20130703
  Transmission Date: 20140515
  Serious: Yes (Death)
  Sender: FDA-Public Use
  Company Number: US-ROCHE-1244099

PATIENT
  Age: 34 Year
  Sex: Male

DRUGS (1)
  1. ZELBORAF [Suspect]
     Indication: MALIGNANT MELANOMA
     Dosage: -SEP-2012
     Route: 048
     Dates: start: 201209, end: 201306

REACTIONS (1)
  - Death [Fatal]
